FAERS Safety Report 15679492 (Version 1)
Quarter: 2018Q4

REPORT INFORMATION
  Report Type: Spontaneous
  Country: FR (occurrence: FR)
  Receive Date: 20181203
  Receipt Date: 20181203
  Transmission Date: 20190205
  Serious: Yes (Hospitalization, Other)
  Sender: FDA-Public Use
  Company Number: FR-AUROBINDO-AUR-APL-2018-057851

PATIENT
  Age: 14 Year
  Sex: Female
  Weight: 58 kg

DRUGS (1)
  1. PARACETAMOL [Suspect]
     Active Substance: ACETAMINOPHEN
     Indication: PRODUCT USED FOR UNKNOWN INDICATION
     Dosage: 16 GRAM, MONTHLY
     Route: 048
     Dates: start: 20181006, end: 20181006

REACTIONS (3)
  - Hepatitis [Recovering/Resolving]
  - Hepatic failure [Recovered/Resolved]
  - Overdose [Recovered/Resolved]

NARRATIVE: CASE EVENT DATE: 20181006
